FAERS Safety Report 4582173-3 (Version None)
Quarter: 2005Q1

REPORT INFORMATION
  Report Type: 
  Country: None (occurrence: None)
  Receive Date: 20050210
  Receipt Date: 20050128
  Transmission Date: 20050727
  Serious: Yes (Other)
  Sender: FDA-Public Use
  Company Number: 2004112805

PATIENT
  Age: 55 Year
  Sex: Female
  Weight: 103.4201 kg

DRUGS (3)
  1. CELEBREX [Suspect]
     Indication: OSTEOARTHRITIS
     Dosage: 600 MG (200 MG, 3 IN 1 D), ORAL
     Route: 048
     Dates: start: 19950101, end: 20040101
  2. BEXTRA [Suspect]
     Indication: OSTEOARTHRITIS
     Dosage: (20 MG), ORAL
     Route: 048
     Dates: start: 20000101, end: 20041001
  3. HYDROCODONE (HYDROCODONE) [Concomitant]

REACTIONS (5)
  - DRUG INEFFECTIVE [None]
  - FOOT OPERATION [None]
  - KNEE ARTHROPLASTY [None]
  - NEUROMA [None]
  - OEDEMA PERIPHERAL [None]
